FAERS Safety Report 21581966 (Version 2)
Quarter: 2023Q1

REPORT INFORMATION
  Report Type: Report from Study
  Country: US (occurrence: US)
  Receive Date: 20221111
  Receipt Date: 20230125
  Transmission Date: 20230418
  Serious: No
  Sender: FDA-Public Use
  Company Number: US-ABBVIE-22K-163-4492586-00

PATIENT
  Age: 46 Year
  Sex: Female

DRUGS (5)
  1. SKYRIZI [Suspect]
     Active Substance: RISANKIZUMAB-RZAA
     Indication: Psoriasis
     Route: 058
     Dates: start: 20220102
  2. SKYRIZI [Suspect]
     Active Substance: RISANKIZUMAB-RZAA
     Indication: Psoriatic arthropathy
     Dosage: DOSE INCREASED
     Route: 058
  3. MODERNA COVID-19 VACCINE [Concomitant]
     Active Substance: ELASOMERAN
     Indication: COVID-19 immunisation
     Dosage: TIME INTERVAL: 1 TOTAL: 1ST DOSE
     Route: 030
     Dates: start: 20210304, end: 20210304
  4. MODERNA COVID-19 VACCINE [Concomitant]
     Active Substance: ELASOMERAN
     Indication: COVID-19 immunisation
     Dosage: TIME INTERVAL: 1 TOTAL: 2ND DOSE
     Route: 030
     Dates: start: 20210405, end: 20210405
  5. PREDNISONE [Suspect]
     Active Substance: PREDNISONE
     Indication: Product used for unknown indication
     Route: 065

REACTIONS (11)
  - Condition aggravated [Not Recovered/Not Resolved]
  - COVID-19 [Recovered/Resolved]
  - Anxiety [Not Recovered/Not Resolved]
  - Vertigo [Not Recovered/Not Resolved]
  - Unevaluable event [Not Recovered/Not Resolved]
  - Insomnia [Not Recovered/Not Resolved]
  - Parosmia [Not Recovered/Not Resolved]
  - Sleep disorder [Not Recovered/Not Resolved]
  - Psoriasis [Unknown]
  - COVID-19 [Not Recovered/Not Resolved]
  - Inflammation [Not Recovered/Not Resolved]

NARRATIVE: CASE EVENT DATE: 20210301
